FAERS Safety Report 5309423-X (Version None)
Quarter: 2007Q2

REPORT INFORMATION
  Report Type: 
  Country: None (occurrence: None)
  Receive Date: 20070425
  Receipt Date: 20070425
  Transmission Date: 20071010
  Serious: Yes (Life-Threatening, Hospitalization)
  Sender: FDA-Public Use
  Company Number: None

PATIENT
  Age: 57 Year
  Sex: Male
  Weight: 203 kg

DRUGS (11)
  1. LOVENOX [Suspect]
     Indication: ATRIAL FIBRILLATION
     Dosage: 200 MG Q12H SQ
     Route: 058
     Dates: start: 20070410, end: 20070415
  2. LOVENOX [Suspect]
     Indication: CARDIOVERSION
     Dosage: 200 MG Q12H SQ
     Route: 058
     Dates: start: 20070410, end: 20070415
  3. COUMADIN [Suspect]
     Dosage: 5MG/10MG/10MG ONCE PO
     Route: 048
     Dates: start: 20070412, end: 20070414
  4. AMIODARONE HCL [Concomitant]
  5. COREG [Concomitant]
  6. PROZAC [Concomitant]
  7. IMDUR [Concomitant]
  8. ALLOPURINOL [Concomitant]
  9. APRESOLNE [Concomitant]
  10. ZESTORETIC [Concomitant]
  11. PREVACID [Concomitant]

REACTIONS (3)
  - ABDOMINAL WALL DISORDER [None]
  - HAEMATOMA [None]
  - SHOCK [None]
